FAERS Safety Report 5497128-4 (Version None)
Quarter: 2007Q4

REPORT INFORMATION
  Report Type: 
  Country: None (occurrence: None)
  Receive Date: 20071023
  Receipt Date: 20071011
  Transmission Date: 20080405
  Serious: Yes (Life-Threatening, Hospitalization)
  Sender: FDA-Public Use
  Company Number: GXKR2007GB08798

PATIENT
  Age: 72 Year
  Sex: Female

DRUGS (2)
  1. WARFARIN SODIUM [Suspect]
     Indication: DEEP VEIN THROMBOSIS
     Dosage: ORAL
     Route: 048
  2. HEPARIN [Concomitant]

REACTIONS (19)
  - ACQUIRED HAEMOPHILIA [None]
  - ACTIVATED PARTIAL THROMBOPLASTIN TIME PROLONGED [None]
  - ANTI FACTOR VIII ANTIBODY POSITIVE [None]
  - BACK PAIN [None]
  - DYSPNOEA [None]
  - FACTOR VIII INHIBITION [None]
  - GENERAL PHYSICAL HEALTH DETERIORATION [None]
  - HAEMOGLOBIN DECREASED [None]
  - HYPOTENSION [None]
  - HYPOVOLAEMIC SHOCK [None]
  - INTENSIVE CARE [None]
  - INTERNATIONAL NORMALISED RATIO INCREASED [None]
  - MUSCULAR WEAKNESS [None]
  - NEUTROPHILIA [None]
  - OVERDOSE [None]
  - PLATELET COUNT INCREASED [None]
  - PROTHROMBIN TIME PROLONGED [None]
  - RETROPERITONEAL HAEMORRHAGE [None]
  - WHITE BLOOD CELL COUNT INCREASED [None]
